FAERS Safety Report 6755263-4 (Version None)
Quarter: 2010Q2

REPORT INFORMATION
  Report Type: 
  Country: None (occurrence: None)
  Receive Date: 20100524
  Receipt Date: 20100315
  Transmission Date: 20101027
  Serious: No
  Sender: FDA-Public Use
  Company Number: 008949

PATIENT
  Sex: Female

DRUGS (1)
  1. CIMZIA [Suspect]
     Indication: CROHN'S DISEASE
     Dosage: 400 MG 1X/MONTH SUBCUTANEOUS
     Route: 058
     Dates: start: 20100112

REACTIONS (2)
  - PHARYNGITIS STREPTOCOCCAL [None]
  - RESPIRATORY TRACT CONGESTION [None]
